FAERS Safety Report 19096773 (Version 1)
Quarter: 2021Q2

REPORT INFORMATION
  Report Type: Spontaneous
  Country: US (occurrence: US)
  Receive Date: 20210405
  Receipt Date: 20210405
  Transmission Date: 20210717
  Serious: No
  Sender: FDA-Public Use
  Company Number: None

PATIENT
  Age: 67 Year
  Sex: Female
  Weight: 83.25 kg

DRUGS (6)
  1. VISINE EYE DROPS [Concomitant]
     Active Substance: TETRAHYDROZOLINE HYDROCHLORIDE
  2. LATANOPROST EYE DROPS [Concomitant]
     Active Substance: LATANOPROST
  3. PANTOPRAZOLE 40MG [Concomitant]
     Active Substance: PANTOPRAZOLE SODIUM
  4. METRONIDAZOLE 500MG [Concomitant]
     Active Substance: METRONIDAZOLE
  5. LEVOFLOXACIN 500MG TABLETS [Suspect]
     Active Substance: LEVOFLOXACIN
     Indication: DIVERTICULITIS
     Dosage: ?          QUANTITY:1 TABLET(S);?
     Route: 048
     Dates: start: 20210326, end: 20210403
  6. VITAMIN D 2000 IU [Concomitant]

REACTIONS (1)
  - Tinnitus [None]

NARRATIVE: CASE EVENT DATE: 20210401
